FAERS Safety Report 24774924 (Version 3)
Quarter: 2025Q1

REPORT INFORMATION
  Report Type: Report from Study
  Country: DE (occurrence: DE)
  Receive Date: 20241226
  Receipt Date: 20250316
  Transmission Date: 20250409
  Serious: Yes (Death, Hospitalization, Other)
  Sender: ABBVIE
  Company Number: DE-ABBVIE-6063626

PATIENT
  Age: 69 Year
  Sex: Male
  Weight: 92 kg

DRUGS (15)
  1. FOSCARBIDOPA\FOSLEVODOPA [Suspect]
     Active Substance: FOSCARBIDOPA\FOSLEVODOPA
     Indication: Parkinson^s disease
     Route: 058
     Dates: start: 20241015
  2. AMANTADINE [Concomitant]
     Active Substance: AMANTADINE
     Indication: Product used for unknown indication
     Route: 048
  3. CHOLECALCIFEROL [Concomitant]
     Active Substance: CHOLECALCIFEROL
     Indication: Product used for unknown indication
     Route: 048
  4. BENSERAZIDE\LEVODOPA [Concomitant]
     Active Substance: BENSERAZIDE\LEVODOPA
     Indication: Product used for unknown indication
     Route: 048
  5. CARBIDOPA LEVODOPA [Concomitant]
     Active Substance: CARBIDOPA\LEVODOPA
     Indication: Product used for unknown indication
     Route: 048
  6. CARBIDOPA LEVODOPA [Concomitant]
     Active Substance: CARBIDOPA\LEVODOPA
     Indication: Product used for unknown indication
     Route: 048
  7. POLYETHYLENE GLYCOLS [Concomitant]
     Active Substance: POLYETHYLENE GLYCOLS
     Indication: Product used for unknown indication
     Route: 048
  8. OPICAPONE [Concomitant]
     Active Substance: OPICAPONE
     Indication: Product used for unknown indication
     Route: 048
  9. PRAMIPEXOLE DIHYDROCHLORIDE [Concomitant]
     Active Substance: PRAMIPEXOLE DIHYDROCHLORIDE
     Indication: Product used for unknown indication
     Route: 048
  10. PRAMIPEXOLE [Concomitant]
     Active Substance: PRAMIPEXOLE
     Indication: Product used for unknown indication
     Route: 048
  11. PRAMIPEXOLE [Concomitant]
     Active Substance: PRAMIPEXOLE
     Indication: Product used for unknown indication
     Route: 048
  12. SAFINAMIDE [Concomitant]
     Active Substance: SAFINAMIDE
     Indication: Product used for unknown indication
     Route: 048
  13. BENSERAZIDE HYDROCHLORIDE\LEVODOPA [Concomitant]
     Active Substance: BENSERAZIDE HYDROCHLORIDE\LEVODOPA
     Indication: Product used for unknown indication
  14. CARBIDOPA AND LEVODOPA [Concomitant]
     Active Substance: CARBIDOPA\LEVODOPA
     Indication: Product used for unknown indication
  15. CARBIDOPA AND LEVODOPA [Concomitant]
     Active Substance: CARBIDOPA\LEVODOPA
     Indication: Product used for unknown indication

REACTIONS (19)
  - Skull fracture [Fatal]
  - Fall [Fatal]
  - Medical induction of coma [Fatal]
  - Subdural haematoma [Unknown]
  - Traumatic subarachnoid haemorrhage [Unknown]
  - Clavicle fracture [Unknown]
  - Hyperkinesia [Unknown]
  - Memory impairment [Unknown]
  - On and off phenomenon [Unknown]
  - Muscle rigidity [Unknown]
  - Craniocerebral injury [Unknown]
  - Dysarthria [Unknown]
  - Visual impairment [Unknown]
  - Pneumonia aspiration [Unknown]
  - Cardiopulmonary failure [Fatal]
  - Aphasia [Unknown]
  - Intracranial pressure increased [Unknown]
  - Pulmonary embolism [Unknown]
  - Gait disturbance [Unknown]

NARRATIVE: CASE EVENT DATE: 20241218
